FAERS Safety Report 7409933-5 (Version None)
Quarter: 2011Q2

REPORT INFORMATION
  Report Type: 
  Country: None (occurrence: None)
  Receive Date: 20110412
  Receipt Date: 20110405
  Transmission Date: 20111010
  Serious: Yes (Hospitalization)
  Sender: FDA-Public Use
  Company Number: US-SANOFI-AVENTIS-2011SA021028

PATIENT
  Age: 22 Year
  Sex: Female

DRUGS (3)
  1. HUMALOG [Concomitant]
     Dosage: PER SLIDING SCALE WITH MEALS
  2. SOLOSTAR [Suspect]
  3. LANTUS [Suspect]
     Dosage: DOSE:36 UNIT(S)
     Route: 058

REACTIONS (2)
  - KETOACIDOSIS [None]
  - HYPERGLYCAEMIA [None]
